FAERS Safety Report 6541053-4 (Version None)
Quarter: 2010Q1

REPORT INFORMATION
  Report Type: 
  Country: None (occurrence: None)
  Receive Date: 20100118
  Receipt Date: 20100112
  Transmission Date: 20100710
  Serious: No
  Sender: FDA-Public Use
  Company Number: US-B.I. PHARMACEUTICALS,INC./RIDGEFIELD-2009-BP-11943BP

PATIENT
  Sex: Male

DRUGS (15)
  1. SPIRIVA [Suspect]
     Indication: POSTOPERATIVE RESPIRATORY DISTRESS
     Dosage: 18 MCG
     Route: 055
     Dates: start: 20081101
  2. SPIRIVA [Suspect]
     Indication: DIAPHRAGMATIC INJURY
  3. SPIRIVA [Suspect]
     Indication: PULMONARY FUNCTION TEST DECREASED
  4. LASIX [Concomitant]
     Indication: CORONARY ARTERY BYPASS
  5. COREG [Concomitant]
     Indication: HYPERTENSION
  6. LISINOPRIL [Concomitant]
     Indication: HYPERTENSION
  7. AVODART [Concomitant]
     Indication: PROSTATOMEGALY
  8. MULTIVITAMIN [Concomitant]
     Indication: MACULAR DEGENERATION
  9. COUMADIN [Concomitant]
     Indication: CORONARY ARTERY BYPASS
  10. ASPIRIN [Concomitant]
     Indication: PROPHYLAXIS
  11. CRANBERRY SUPPLEMENT [Concomitant]
     Indication: PROPHYLAXIS
  12. PRAVACHOL [Concomitant]
     Indication: BLOOD CHOLESTEROL INCREASED
  13. VITAMIN D [Concomitant]
     Indication: PROPHYLAXIS
  14. FIBER [Concomitant]
     Indication: PROPHYLAXIS
  15. SPIRONOLACTONE [Concomitant]

REACTIONS (1)
  - CANDIDIASIS [None]
